FAERS Safety Report 10331558 (Version 1)
Quarter: 2014Q3

REPORT INFORMATION
  Report Type: Spontaneous
  Country: US (occurrence: None)
  Receive Date: 20140721
  Receipt Date: 20140721
  Transmission Date: 20150326
  Serious: No
  Sender: FDA-Public Use
  Company Number: None

PATIENT

DRUGS (2)
  1. AMIODARONE [Suspect]
     Active Substance: AMIODARONE
     Dosage: INJECTABLE?INTRAVENOUS USE ONLY?150 MG/3ML, SINGLE USE VIAL?SINGLE USE VIAL ?3 ML
     Route: 042
  2. ADENOSCAN [Suspect]
     Active Substance: ADENOSINE
     Dosage: INJECTABLE?INTRAVENOUS USE?6 MG/2 ML?SINGLE DOSE VIAL?2 ML
     Route: 042

REACTIONS (2)
  - Intercepted drug dispensing error [None]
  - Product label confusion [None]
